FAERS Safety Report 7387539-4 (Version None)
Quarter: 2011Q1

REPORT INFORMATION
  Report Type: 
  Country: None (occurrence: None)
  Receive Date: 20110331
  Receipt Date: 20110325
  Transmission Date: 20110831
  Serious: Yes (Death, Life-Threatening, Hospitalization, Other)
  Sender: FDA-Public Use
  Company Number: JP-PFIZER INC-2011011067

PATIENT
  Age: 81 Year
  Sex: Female

DRUGS (13)
  1. SOLU-MEDROL [Suspect]
     Dosage: 500 MG DAILY
     Dates: start: 20110206, end: 20110209
  2. PAXIL [Concomitant]
     Dosage: UNK
  3. SOLU-MEDROL [Suspect]
     Dosage: 250 MG DAILY
     Dates: start: 20110209
  4. GLYBURIDE [Concomitant]
     Dosage: 1.25 MG, 1X/DAY
  5. AMLODIPINE [Concomitant]
     Dosage: 5 MG, 1X/DAY
  6. SOLU-MEDROL [Suspect]
     Dosage: 1000MG DAILY
     Route: 042
     Dates: start: 20110203, end: 20110206
  7. HEPARIN LOCK-FLUSH [Concomitant]
     Dosage: UNK
     Dates: start: 20110125, end: 20110203
  8. SOLU-MEDROL [Suspect]
     Indication: INTERSTITIAL LUNG DISEASE
     Dosage: 1000 MG, 1X/DAY
     Route: 042
     Dates: start: 20110112, end: 20110112
  9. LASIX [Concomitant]
     Dosage: 20 MG, 1X/DAY
  10. HEPARIN LOCK-FLUSH [Concomitant]
     Dosage: 2 DF, 2X/DAY
     Dates: start: 20110111, end: 20110117
  11. SOLU-MEDROL [Suspect]
     Dosage: 1000MG DAILY
     Route: 042
     Dates: start: 20110114, end: 20110115
  12. ERYTHROCIN LACTOBIONATE [Concomitant]
     Dosage: 1000 MG, 2X/DAY
     Route: 042
     Dates: start: 20110111
  13. UNASYN [Suspect]
     Dosage: 6 G, 2X/DAY
     Route: 042
     Dates: start: 20110111

REACTIONS (5)
  - DISSEMINATED INTRAVASCULAR COAGULATION [None]
  - INTERSTITIAL LUNG DISEASE [None]
  - URINARY TRACT INFECTION [None]
  - PLATELET COUNT DECREASED [None]
  - SEPSIS [None]
